FAERS Safety Report 9705273 (Version 1)
Quarter: 2013Q4

REPORT INFORMATION
  Report Type: Spontaneous
  Country: CN (occurrence: CN)
  Receive Date: 20131122
  Receipt Date: 20131122
  Transmission Date: 20140711
  Serious: Yes (Death)
  Sender: FDA-Public Use
  Company Number: CN-ACTELION-A-CH2013-91496

PATIENT
  Age: 31 Year
  Sex: Female

DRUGS (2)
  1. TRACLEER [Suspect]
     Indication: PULMONARY ARTERIAL HYPERTENSION
     Dosage: 62.5 MG, BID
     Route: 048
     Dates: start: 20130928
  2. SILDENAFIL [Concomitant]
     Dosage: 25 MG, TID

REACTIONS (2)
  - Ventricular tachycardia [Fatal]
  - Pulmonary hypertension [Unknown]
